FAERS Safety Report 9732600 (Version 1)
Quarter: 2013Q4

REPORT INFORMATION
  Report Type: Spontaneous
  Country: US (occurrence: US)
  Receive Date: 20131205
  Receipt Date: 20131205
  Transmission Date: 20140711
  Serious: Yes (Other)
  Sender: FDA-Public Use
  Company Number: US-JNJFOC-20131115698

PATIENT
  Sex: Female
  Weight: 58.06 kg

DRUGS (16)
  1. XARELTO [Suspect]
     Indication: CEREBROVASCULAR ACCIDENT PROPHYLAXIS
     Route: 048
     Dates: start: 2012
  2. XARELTO [Suspect]
     Indication: CEREBROVASCULAR ACCIDENT PROPHYLAXIS
     Route: 048
  3. XARELTO [Suspect]
     Indication: ATRIAL FIBRILLATION
     Route: 048
  4. XARELTO [Suspect]
     Indication: ATRIAL FIBRILLATION
     Route: 048
     Dates: start: 2012
  5. MAGNESIUM [Concomitant]
     Indication: ROUTINE HEALTH MAINTENANCE
     Route: 048
  6. VITAMIN D [Concomitant]
     Indication: ROUTINE HEALTH MAINTENANCE
     Route: 048
  7. VITAMIN C [Concomitant]
     Indication: ROUTINE HEALTH MAINTENANCE
     Route: 048
  8. SOTALOL [Concomitant]
     Indication: ATRIAL FIBRILLATION
     Route: 048
  9. BYSTOLIC [Concomitant]
     Indication: BLOOD PRESSURE
     Route: 048
     Dates: start: 201311
  10. BYSTOLIC [Concomitant]
     Indication: BLOOD PRESSURE
     Route: 048
     Dates: start: 2012, end: 201311
  11. SYNTHROID [Concomitant]
     Indication: THYROID DISORDER
     Route: 048
     Dates: start: 2012
  12. VITAMIN B COMPLEX [Concomitant]
     Indication: ROUTINE HEALTH MAINTENANCE
     Dosage: DAILY
     Route: 048
  13. FISH OIL [Concomitant]
     Indication: ROUTINE HEALTH MAINTENANCE
     Route: 048
  14. DOCOSAHEXAENOIC ACID [Concomitant]
     Indication: ROUTINE HEALTH MAINTENANCE
     Route: 048
  15. COQ10 [Concomitant]
     Route: 048
  16. VITAMINE E [Concomitant]
     Indication: ROUTINE HEALTH MAINTENANCE
     Dosage: SMALL DOSE
     Route: 048

REACTIONS (5)
  - Cholelithiasis [Recovered/Resolved]
  - Contusion [Unknown]
  - Laceration [Recovered/Resolved]
  - Inappropriate schedule of drug administration [Not Recovered/Not Resolved]
  - Fatigue [Unknown]
